FAERS Safety Report 7525795-X (Version None)
Quarter: 2011Q2

REPORT INFORMATION
  Report Type: 
  Country: None (occurrence: None)
  Receive Date: 20110606
  Receipt Date: 20110223
  Transmission Date: 20111010
  Serious: No
  Sender: FDA-Public Use
  Company Number: A0915084A

PATIENT
  Sex: Male

DRUGS (3)
  1. LUVOX [Concomitant]
  2. XANAX [Concomitant]
  3. LAMICTAL [Suspect]
     Dosage: 25MG TWICE PER DAY
     Route: 048
     Dates: start: 20101222

REACTIONS (2)
  - PRURITUS [None]
  - RASH PAPULAR [None]
